FAERS Safety Report 12355848 (Version 1)
Quarter: 2016Q2

REPORT INFORMATION
  Report Type: Spontaneous
  Country: CH (occurrence: CH)
  Receive Date: 20160511
  Receipt Date: 20160511
  Transmission Date: 20160815
  Serious: Yes (Hospitalization, Other)
  Sender: FDA-Public Use
  Company Number: CH-IPCA LABORATORIES LIMITED-IPC201605-000422

PATIENT
  Age: 57 Year
  Sex: Male

DRUGS (13)
  1. IBUPROFEN. [Suspect]
     Active Substance: IBUPROFEN
  2. CITALOPRAM [Concomitant]
     Active Substance: CITALOPRAM HYDROBROMIDE
  3. CLONAZEPAM. [Concomitant]
     Active Substance: CLONAZEPAM
  4. MEFENAMIC ACID. [Suspect]
     Active Substance: MEFENAMIC ACID
  5. HYDROCHLOROTHIAZIDE. [Suspect]
     Active Substance: HYDROCHLOROTHIAZIDE
  6. LOSARTAN. [Suspect]
     Active Substance: LOSARTAN
  7. ESOMEPRAZOLE [Concomitant]
     Active Substance: ESOMEPRAZOLE
  8. PROPRANOLOL [Concomitant]
     Active Substance: PROPRANOLOL\PROPRANOLOL HYDROCHLORIDE
  9. TORASEMIDE [Concomitant]
     Active Substance: TORSEMIDE
  10. TOPIRAMATE. [Suspect]
     Active Substance: TOPIRAMATE
     Indication: ESSENTIAL TREMOR
  11. TOPIRAMATE. [Suspect]
     Active Substance: TOPIRAMATE
  12. ALLOPURINOL. [Concomitant]
     Active Substance: ALLOPURINOL
  13. METFORMIN [Concomitant]
     Active Substance: METFORMIN HYDROCHLORIDE

REACTIONS (4)
  - Acute kidney injury [Recovering/Resolving]
  - Heat stroke [Recovering/Resolving]
  - Multiple organ dysfunction syndrome [Recovering/Resolving]
  - Drug level increased [Unknown]
